FAERS Safety Report 25779628 (Version 1)
Quarter: 2025Q3

REPORT INFORMATION
  Report Type: Spontaneous
  Country: US (occurrence: None)
  Receive Date: 20250908
  Receipt Date: 20250908
  Transmission Date: 20251020
  Serious: Yes (Hospitalization)
  Sender: FDA-CTU
  Company Number: None

PATIENT
  Age: 10 Week
  Sex: Female
  Weight: 87.75 kg

DRUGS (7)
  1. PROLIA [Suspect]
     Active Substance: DENOSUMAB
     Indication: Osteoporosis
     Route: 058
  2. NP THYROID [Concomitant]
     Active Substance: LEVOTHYROXINE\LIOTHYRONINE
  3. VITAMIN D [Concomitant]
     Active Substance: VITAMIN D NOS
  4. VITAMIN E [Concomitant]
     Active Substance: .ALPHA.-TOCOPHEROL
  5. HERBALS\TURMERIC [Concomitant]
     Active Substance: HERBALS\TURMERIC
  6. MAGNESIUM [Concomitant]
     Active Substance: MAGNESIUM
  7. FISH OIL [Concomitant]
     Active Substance: FISH OIL

REACTIONS (8)
  - Myalgia [None]
  - Arthralgia [None]
  - Neuralgia [None]
  - Paraesthesia [None]
  - Hypoaesthesia [None]
  - Gait inability [None]
  - Incontinence [None]
  - Laboratory test abnormal [None]

NARRATIVE: CASE EVENT DATE: 20250730
